FAERS Safety Report 5354654-6 (Version None)
Quarter: 2007Q2

REPORT INFORMATION
  Report Type: 
  Country: None (occurrence: None)
  Receive Date: 20070612
  Receipt Date: 20070530
  Transmission Date: 20071010
  Serious: Yes (Death, Hospitalization)
  Sender: FDA-Public Use
  Company Number: CH-AMGEN-UK227175

PATIENT
  Sex: Male

DRUGS (5)
  1. NEUPOGEN [Suspect]
     Indication: CHEMOTHERAPY
     Route: 058
     Dates: start: 20070427
  2. RITUXIMAB [Suspect]
     Route: 042
     Dates: start: 20070419
  3. CISPLATIN [Suspect]
     Route: 042
     Dates: start: 20070422
  4. ARA-C [Suspect]
     Route: 042
     Dates: start: 20070424
  5. DEXAMETHASONE 0.5MG TAB [Suspect]
     Route: 048
     Dates: start: 20070422

REACTIONS (6)
  - ATRIAL FIBRILLATION [None]
  - CARDIAC FAILURE [None]
  - CEREBRAL INFARCTION [None]
  - FEBRILE NEUTROPENIA [None]
  - RESPIRATORY FAILURE [None]
  - TACHYCARDIA [None]
